FAERS Safety Report 16847077 (Version 1)
Quarter: 2019Q3

REPORT INFORMATION
  Report Type: Spontaneous
  Country: US (occurrence: US)
  Receive Date: 20190924
  Receipt Date: 20190924
  Transmission Date: 20191005
  Serious: Yes (Hospitalization)
  Sender: FDA-Public Use
  Company Number: US-TEVA-2019-US-1110756

PATIENT
  Sex: Female

DRUGS (3)
  1. QUETIAPINE FUMARATE TABLET TEVA [Suspect]
     Active Substance: QUETIAPINE FUMARATE
     Indication: CHARLES BONNET SYNDROME
     Route: 065
  2. QUETIAPINE FUMARATE TABLET TEVA [Suspect]
     Active Substance: QUETIAPINE FUMARATE
     Indication: MACULAR DEGENERATION
     Route: 065
     Dates: start: 201907
  3. QUETIAPINE FUMARATE TABLET TEVA [Suspect]
     Active Substance: QUETIAPINE FUMARATE
     Route: 065

REACTIONS (2)
  - Psychotic disorder [Unknown]
  - Hallucination [Unknown]

NARRATIVE: CASE EVENT DATE: 201907
